FAERS Safety Report 17517624 (Version 6)
Quarter: 2024Q2

REPORT INFORMATION
  Report Type: Spontaneous
  Country: HU (occurrence: HU)
  Receive Date: 20200309
  Receipt Date: 20240401
  Transmission Date: 20240716
  Serious: Yes (Death, Life-Threatening, Hospitalization, Other)
  Sender: FDA-Public Use
  Company Number: HU-TEVA-2020-HU-1172352

PATIENT
  Age: 37 Year
  Sex: Female

DRUGS (11)
  1. LAMOTRIGINE [Interacting]
     Active Substance: LAMOTRIGINE
     Indication: Epilepsy
     Dosage: 12.5 MILLIGRAM, QD
     Route: 065
  2. LAMOTRIGINE [Interacting]
     Active Substance: LAMOTRIGINE
     Dosage: 25 MILLIGRAM, QD
     Route: 065
  3. VANCOMYCIN [Suspect]
     Active Substance: VANCOMYCIN
     Indication: Product used for unknown indication
     Dosage: UNK
     Route: 065
  4. LAMOTRIGINE [Suspect]
     Active Substance: LAMOTRIGINE
     Indication: Epilepsy
     Dosage: TITRATING UPWARDS FROM A LOW DOSE, INITIALLY AT 12.5 MG/DAY, FOLLOWED BY 25 MG/DAY
     Route: 048
     Dates: start: 201802
  5. VALPROIC ACID [Interacting]
     Active Substance: VALPROIC ACID
     Indication: Epilepsy
     Dosage: UNKNOWN DOSE
     Route: 065
  6. LAMICTAL [Suspect]
     Active Substance: LAMOTRIGINE
     Indication: Epilepsy
     Dosage: UNK, 3 WEEKS
     Route: 065
  7. VALPROATE SODIUM [Interacting]
     Active Substance: VALPROATE SODIUM
     Indication: Epilepsy
     Dosage: UNKNOWN DOSE
     Route: 065
  8. VALPROIC ACID [Interacting]
     Active Substance: VALPROIC ACID
     Indication: Epilepsy
     Dosage: 450 MILLIGRAM, QD, IN THE MORNING
     Route: 065
  9. VALPROIC ACID [Interacting]
     Active Substance: VALPROIC ACID
     Dosage: 600 MILLIGRAM, QD, IN THE EVENING
     Route: 065
  10. VALPROATE [Interacting]
     Active Substance: VALPROIC ACID
     Indication: Epilepsy
     Dosage: 450 MG VALPROIC ACID IN THE MORNING AND 600 MG
     Route: 065
  11. LEVETIRACETAM [Concomitant]
     Active Substance: LEVETIRACETAM
     Indication: Product used for unknown indication
     Dosage: UNK
     Route: 065

REACTIONS (31)
  - Influenza like illness [Fatal]
  - Sepsis [Fatal]
  - Multiple organ dysfunction syndrome [Fatal]
  - Skin necrosis [Fatal]
  - Toxic epidermal necrolysis [Fatal]
  - Drug interaction [Fatal]
  - Acute respiratory distress syndrome [Unknown]
  - Superinfection [Unknown]
  - Atrial fibrillation [Unknown]
  - Renal impairment [Unknown]
  - Respiratory failure [Unknown]
  - Pancytopenia [Unknown]
  - Leukopenia [Unknown]
  - Pyrexia [Unknown]
  - Hypoalbuminaemia [Unknown]
  - Eye pruritus [Unknown]
  - Palmar-plantar erythrodysaesthesia syndrome [Unknown]
  - Oral mucosa erosion [Unknown]
  - Hypernatraemia [Unknown]
  - Inflammation [Unknown]
  - Procalcitonin increased [Unknown]
  - Hypoproteinaemia [Unknown]
  - Nikolsky^s sign [Unknown]
  - Blister [Unknown]
  - Pancreatic enzymes increased [Unknown]
  - Oral mucosal blistering [Unknown]
  - Disease progression [Unknown]
  - Eye disorder [Unknown]
  - Oropharyngeal pain [Unknown]
  - Hypersensitivity [Unknown]
  - Hepatic enzyme increased [Unknown]

NARRATIVE: CASE EVENT DATE: 20180201
